FAERS Safety Report 5821443-5 (Version None)
Quarter: 2008Q3

REPORT INFORMATION
  Report Type: 
  Country: None (occurrence: None)
  Receive Date: 20080724
  Receipt Date: 20080716
  Transmission Date: 20090109
  Serious: Yes (Other)
  Sender: FDA-Public Use
  Company Number: A0739172A

PATIENT
  Sex: Male

DRUGS (3)
  1. ADVAIR DISKUS 100/50 [Suspect]
     Indication: ASTHMA
     Route: 055
     Dates: start: 20080401
  2. IPRATROPIUM BROMIDE [Concomitant]
  3. THEO [Concomitant]
     Dosage: 200MG PER DAY

REACTIONS (2)
  - ASTHMA [None]
  - BRONCHITIS [None]
